FAERS Safety Report 5145613-7 (Version None)
Quarter: 2006Q4

REPORT INFORMATION
  Report Type: 
  Country: None (occurrence: None)
  Receive Date: 20061101
  Receipt Date: 20061016
  Transmission Date: 20070319
  Serious: Yes (Other)
  Sender: FDA-Public Use
  Company Number: DSA_28406_2006

PATIENT
  Sex: Male

DRUGS (7)
  1. ATIVAN [Suspect]
     Indication: ANXIETY
     Dosage: DF BID PO
     Route: 048
     Dates: start: 19950101, end: 20050824
  2. LORAZEPAM [Suspect]
     Indication: ANXIETY
     Dosage: DF Q DAY PO
     Route: 048
  3. ATIVAN [Suspect]
     Indication: ANXIETY
     Dosage: DF Q DAY PO
     Route: 048
     Dates: start: 20051101, end: 20051101
  4. ATIVAN [Suspect]
     Indication: ANXIETY
     Dosage: DF Q DAY PO
     Route: 048
     Dates: start: 20051101
  5. DEPAKOTE [Concomitant]
  6. RISPERDAL [Concomitant]
  7. COGENTIN [Concomitant]

REACTIONS (11)
  - AGITATION [None]
  - ANGER [None]
  - ANXIETY [None]
  - ASPERGER'S DISORDER [None]
  - AUTISM [None]
  - CONDITION AGGRAVATED [None]
  - DRUG INEFFECTIVE [None]
  - ECONOMIC PROBLEM [None]
  - PHARMACEUTICAL PRODUCT COMPLAINT [None]
  - PSYCHOTIC DISORDER [None]
  - THERAPEUTIC RESPONSE DECREASED [None]
